FAERS Safety Report 10084071 (Version 2)
Quarter: 2014Q2

REPORT INFORMATION
  Report Type: Spontaneous
  Country: US (occurrence: US)
  Receive Date: 20140417
  Receipt Date: 20140429
  Transmission Date: 20141212
  Serious: Yes (Other)
  Sender: FDA-Public Use
  Company Number: US-JNJFOC-20140407804

PATIENT
  Age: 57 Year
  Sex: Male
  Weight: 73.48 kg

DRUGS (14)
  1. REMICADE [Suspect]
     Indication: RHEUMATOID ARTHRITIS
     Route: 042
  2. REMICADE [Suspect]
     Indication: RHEUMATOID ARTHRITIS
     Route: 042
     Dates: start: 20140422
  3. REMICADE [Suspect]
     Indication: RHEUMATOID ARTHRITIS
     Route: 042
     Dates: start: 20140307
  4. IBUPROFEN [Concomitant]
     Dosage: 1 TABLET EVERY EIGHT HOURS
     Route: 048
     Dates: start: 20140410
  5. ALLOPURINOL [Concomitant]
     Dosage: 1 TAB BY MOUTH TWICW A DAY
     Route: 048
     Dates: start: 20140407
  6. ALIGN NOS [Concomitant]
     Route: 048
     Dates: start: 20131023
  7. CETRIZINE [Concomitant]
     Route: 048
     Dates: start: 20140414
  8. COLCRYS [Concomitant]
     Route: 048
     Dates: start: 20140413
  9. FLURBIPROFEN [Concomitant]
     Route: 065
     Dates: start: 20131015
  10. HYDROCODONE + ACETAMINOPHEN [Concomitant]
     Route: 048
     Dates: start: 20131112
  11. HYDROCODONE + ACETAMINOPHEN [Concomitant]
     Dosage: HYDROCODONE 7.5MG AND ACETAMINOPHEN 325 MG.??EVERY 6 HOUR AS NEEDED
     Route: 048
     Dates: start: 20140312
  12. LEVAQUIN [Concomitant]
     Route: 048
     Dates: start: 20140410, end: 20140420
  13. NAFTIN [Concomitant]
     Route: 061
     Dates: start: 20131011
  14. PREDNISONE [Concomitant]
     Dosage: 12 DAY DOSEPACK
     Route: 065
     Dates: start: 20140410

REACTIONS (2)
  - Osteopenia [Unknown]
  - Rheumatoid arthritis [Unknown]
